FAERS Safety Report 8539511-6 (Version None)
Quarter: 2012Q3

REPORT INFORMATION
  Report Type: 
  Country: None (occurrence: None)
  Receive Date: 20120716
  Receipt Date: 20120713
  Transmission Date: 20120928
  Serious: Yes (Hospitalization)
  Sender: FDA-Public Use
  Company Number: SP05877

PATIENT
  Age: 51 Year
  Sex: Female

DRUGS (1)
  1. VISICOL [Suspect]
     Indication: BOWEL PREPARATION
     Dosage: ORAL
     Route: 048
     Dates: start: 20120702, end: 20120702

REACTIONS (4)
  - MUSCULOSKELETAL STIFFNESS [None]
  - RESPIRATORY DISORDER [None]
  - BLOOD CALCIUM DECREASED [None]
  - HYPOAESTHESIA [None]
